FAERS Safety Report 16873296 (Version 1)
Quarter: 2019Q4

REPORT INFORMATION
  Report Type: Spontaneous
  Country: US (occurrence: US)
  Receive Date: 20191001
  Receipt Date: 20191001
  Transmission Date: 20200122
  Serious: No
  Sender: FDA-Public Use
  Company Number: US-PFIZER INC-2019418153

PATIENT
  Sex: Male

DRUGS (2)
  1. SANDOSTATIN LAR DEPOT [Suspect]
     Active Substance: OCTREOTIDE ACETATE
     Dosage: UNK, DAILY (EVERY 3 WEEKS)
  2. PEGVISOMANT [Suspect]
     Active Substance: PEGVISOMANT
     Dosage: 60 MG, DAILY

REACTIONS (2)
  - Prescribed overdose [Unknown]
  - Neoplasm progression [Unknown]
